FAERS Safety Report 11668149 (Version 1)
Quarter: 2015Q4

REPORT INFORMATION
  Report Type: Spontaneous
  Country: US (occurrence: US)
  Receive Date: 20151027
  Receipt Date: 20151027
  Transmission Date: 20160304
  Serious: No
  Sender: FDA-Public Use
  Company Number: US-ELI_LILLY_AND_COMPANY-US201003003804

PATIENT
  Sex: Female

DRUGS (2)
  1. FORTEO [Suspect]
     Active Substance: TERIPARATIDE
     Indication: OSTEOPOROSIS
     Dates: start: 200809
  2. CALCIUM + VITAMIN D [Concomitant]
     Active Substance: CALCIUM\VITAMIN D

REACTIONS (1)
  - Vitamin D decreased [Unknown]

NARRATIVE: CASE EVENT DATE: 201003
